FAERS Safety Report 6406101-0 (Version None)
Quarter: 2009Q4

REPORT INFORMATION
  Report Type: 
  Country: None (occurrence: None)
  Receive Date: 20091019
  Receipt Date: 20091008
  Transmission Date: 20100525
  Serious: Yes (Disabling)
  Sender: FDA-Public Use
  Company Number: DK-WYE-H09576609

PATIENT
  Age: 77 Year
  Sex: Female

DRUGS (6)
  1. CORDARONE [Suspect]
     Indication: ATRIAL FIBRILLATION
     Route: 048
     Dates: start: 20090226, end: 20090316
  2. CORDARONE [Suspect]
     Route: 048
     Dates: start: 20090317, end: 20090427
  3. MICARDIS [Concomitant]
     Dosage: 40 MG (FREQUENCY UNSPECIFIED)
     Route: 048
  4. FURIX [Concomitant]
     Dosage: 40 MG (FREQUENCY UNSPECIFIED)
     Route: 048
  5. MAREVAN [Concomitant]
     Dosage: UNSPECIFIED
     Route: 048
  6. KALEORID [Concomitant]
     Dosage: 750 MG (FREQUENCY UNSPECIFIED)
     Route: 048

REACTIONS (4)
  - ARTHRALGIA [None]
  - CORNEAL DEPOSITS [None]
  - RETINAL VEIN THROMBOSIS [None]
  - VISUAL ACUITY REDUCED [None]
